FAERS Safety Report 17489985 (Version 1)
Quarter: 2020Q1

REPORT INFORMATION
  Report Type: Spontaneous
  Country: US (occurrence: US)
  Receive Date: 20200303
  Receipt Date: 20200303
  Transmission Date: 20200409
  Serious: No
  Sender: FDA-Public Use
  Company Number: US-AKORN PHARMACEUTICALS-2019AKN01504

PATIENT
  Sex: Female

DRUGS (5)
  1. NORVASC [Concomitant]
     Active Substance: AMLODIPINE BESYLATE
  2. LIPITOR [Concomitant]
     Active Substance: ATORVASTATIN CALCIUM
     Dosage: UNK MG
  3. METFORMIN [Concomitant]
     Active Substance: METFORMIN HYDROCHLORIDE
  4. MYORISAN [Suspect]
     Active Substance: ISOTRETINOIN
     Indication: ACNE
     Dosage: 10 MG, 1X/DAY
     Dates: start: 20190605, end: 20190706
  5. MYORISAN [Suspect]
     Active Substance: ISOTRETINOIN
     Indication: ROSACEA

REACTIONS (2)
  - Off label use [Recovered/Resolved]
  - Lip dry [Recovered/Resolved]

NARRATIVE: CASE EVENT DATE: 2019
